FAERS Safety Report 13936181 (Version 3)
Quarter: 2017Q4

REPORT INFORMATION
  Report Type: Spontaneous
  Country: DE (occurrence: DE)
  Receive Date: 20170905
  Receipt Date: 20171003
  Transmission Date: 20180320
  Serious: Yes (Hospitalization, Other)
  Sender: FDA-Public Use
  Company Number: DE-UCBSA-2017032013

PATIENT
  Sex: Male

DRUGS (11)
  1. NEUPRO [Suspect]
     Active Substance: ROTIGOTINE
     Dosage: 6 MG, ONCE DAILY (QD)
     Route: 062
  2. TARGIN [Concomitant]
     Active Substance: NALOXONE HYDROCHLORIDE\OXYCODONE HYDROCHLORIDE
     Indication: PAIN
     Dosage: UNK
  3. LYRICA [Concomitant]
     Active Substance: PREGABALIN
     Indication: PAIN
     Dosage: UNK
  4. MEPIVACAINE [Suspect]
     Active Substance: MEPIVACAINE\MEPIVACAINE HYDROCHLORIDE
     Indication: INFECTION PROPHYLAXIS
     Dosage: UNK
  5. NOVALGIN [Concomitant]
     Active Substance: METAMIZOLE SODIUM
     Indication: PAIN
     Dosage: UNK
  6. PARACETAMOL [Concomitant]
     Active Substance: ACETAMINOPHEN
     Indication: PAIN
     Dosage: UNK
  7. NEUPRO [Suspect]
     Active Substance: ROTIGOTINE
     Dosage: UP TO 6 MG DAILY DOSAGE
     Route: 062
  8. TRAMAL [Concomitant]
     Active Substance: TRAMADOL
     Indication: PAIN
     Dosage: UNK
  9. NEUPRO [Suspect]
     Active Substance: ROTIGOTINE
     Indication: RESTLESS LEGS SYNDROME
     Dosage: UNK
     Route: 062
     Dates: start: 20130807
  10. METHOCARBAMOL. [Suspect]
     Active Substance: METHOCARBAMOL
     Indication: LOCAL ANAESTHESIA
     Dosage: UNK
  11. GABAPENTIN. [Concomitant]
     Active Substance: GABAPENTIN
     Indication: PAIN
     Dosage: UNK

REACTIONS (9)
  - Restless legs syndrome [Recovering/Resolving]
  - Malignant hypertension [Recovering/Resolving]
  - Cervicogenic headache [Recovering/Resolving]
  - Tinnitus [Recovering/Resolving]
  - Extrapyramidal disorder [Recovering/Resolving]
  - Spinal osteoarthritis [Recovering/Resolving]
  - Dermatitis allergic [Recovering/Resolving]
  - Depression [Recovering/Resolving]
  - Movement disorder [Unknown]
